FAERS Safety Report 10963877 (Version 2)
Quarter: 2015Q2

REPORT INFORMATION
  Report Type: Spontaneous
  Country: US (occurrence: US)
  Receive Date: 20150328
  Receipt Date: 20150524
  Transmission Date: 20150821
  Serious: No
  Sender: FDA-Public Use
  Company Number: US-JNJFOC-20140609804

PATIENT
  Age: 72 Year
  Sex: Female
  Weight: 42.18 kg

DRUGS (4)
  1. PERCOCET [Suspect]
     Active Substance: ACETAMINOPHEN\OXYCODONE HYDROCHLORIDE
     Indication: BREAKTHROUGH PAIN
     Route: 065
  2. FENTANYL. [Suspect]
     Active Substance: FENTANYL
     Indication: BACK PAIN
     Route: 062
     Dates: end: 20130910
  3. FENTANYL. [Suspect]
     Active Substance: FENTANYL
     Indication: BACK PAIN
     Route: 062
     Dates: start: 20130911
  4. FENTANYL. [Suspect]
     Active Substance: FENTANYL
     Indication: BACK PAIN
     Route: 062
     Dates: start: 20130910, end: 20130911

REACTIONS (4)
  - Wound [Recovered/Resolved]
  - Skin lesion [Not Recovered/Not Resolved]
  - Inadequate analgesia [Unknown]
  - Dizziness [Unknown]

NARRATIVE: CASE EVENT DATE: 20130910
